FAERS Safety Report 7364277-5 (Version None)
Quarter: 2011Q1

REPORT INFORMATION
  Report Type: 
  Country: None (occurrence: None)
  Receive Date: 20110321
  Receipt Date: 20110127
  Transmission Date: 20110831
  Serious: Yes (Other)
  Sender: FDA-Public Use
  Company Number: B0697394A

PATIENT
  Sex: Female

DRUGS (1)
  1. LAMICTAL [Suspect]
     Dosage: 500MG PER DAY
     Route: 048
     Dates: start: 20050101

REACTIONS (12)
  - ASTHENIA [None]
  - ANTICONVULSANT DRUG LEVEL ABOVE THERAPEUTIC [None]
  - ABDOMINAL PAIN [None]
  - ABNORMAL SENSATION IN EYE [None]
  - FATIGUE [None]
  - DIZZINESS [None]
  - STRESS AT WORK [None]
  - NAUSEA [None]
  - ASTHENOPIA [None]
  - MUSCLE SPASMS [None]
  - MALAISE [None]
  - DIPLOPIA [None]
